FAERS Safety Report 5736787-5 (Version None)
Quarter: 2008Q2

REPORT INFORMATION
  Report Type: 
  Country: None (occurrence: None)
  Receive Date: 20080513
  Receipt Date: 20080506
  Transmission Date: 20081010
  Serious: No
  Sender: FDA-Public Use
  Company Number: US-BAXTER-2008BH004307

PATIENT
  Age: 32 Year
  Sex: Female
  Weight: 58 kg

DRUGS (8)
  1. HEPARIN SODIUM [Suspect]
     Indication: CYSTITIS INTERSTITIAL
     Dosage: DOSE UNIT:UNKNOWN
     Route: 043
     Dates: start: 20070901, end: 20080201
  2. BICARBONATE [Concomitant]
     Indication: CYSTITIS INTERSTITIAL
     Route: 043
  3. LIDOCAINE [Concomitant]
     Indication: CYSTITIS INTERSTITIAL
     Route: 043
  4. REMICYCLIN D [Concomitant]
     Indication: DRUG USE FOR UNKNOWN INDICATION
     Dosage: DOSE UNIT:UNKNOWN
     Route: 065
     Dates: start: 20080101
  5. ELEMIRION [Concomitant]
     Indication: DRUG USE FOR UNKNOWN INDICATION
     Dosage: DOSE UNIT:UNKNOWN
     Route: 065
  6. LEFAXIN [Concomitant]
     Indication: DRUG USE FOR UNKNOWN INDICATION
     Dosage: DOSE UNIT:UNKNOWN
     Route: 065
  7. DILAUDID [Concomitant]
     Indication: DRUG USE FOR UNKNOWN INDICATION
     Dosage: DOSE UNIT:UNKNOWN
     Route: 065
  8. UNSPECIFIED BIRTH CONTROL [Concomitant]
     Indication: CONTRACEPTION
     Route: 065

REACTIONS (4)
  - ASTHENIA [None]
  - NAUSEA [None]
  - VAGINAL PAIN [None]
  - VULVOVAGINAL BURNING SENSATION [None]
